FAERS Safety Report 21966453 (Version 1)
Quarter: 2023Q1

REPORT INFORMATION
  Report Type: Spontaneous
  Country: US (occurrence: US)
  Receive Date: 20230208
  Receipt Date: 20230208
  Transmission Date: 20230418
  Serious: No
  Sender: FDA-Public Use
  Company Number: US-BIOGEN-2022BI01115203

PATIENT
  Age: 25 Year
  Sex: Female

DRUGS (3)
  1. VUMERITY [Suspect]
     Active Substance: DIROXIMEL FUMARATE
     Indication: Multiple sclerosis
     Dosage: FOR 7 DAYS, THEN 2 CAPSULES BY MOUTH 2 TIMES A DAY THEREAFTER
     Route: 050
     Dates: start: 20220414
  2. VUMERITY [Suspect]
     Active Substance: DIROXIMEL FUMARATE
     Route: 050
     Dates: start: 20220421, end: 20220423
  3. VUMERITY [Suspect]
     Active Substance: DIROXIMEL FUMARATE
     Route: 050
     Dates: start: 20220413

REACTIONS (7)
  - Product dose omission in error [Unknown]
  - Memory impairment [Unknown]
  - Confusional state [Unknown]
  - Varicella [Unknown]
  - Urticaria [Unknown]
  - Abdominal pain [Unknown]
  - Flushing [Unknown]

NARRATIVE: CASE EVENT DATE: 20220414
